FAERS Safety Report 25820272 (Version 1)
Quarter: 2025Q3

REPORT INFORMATION
  Report Type: Other
  Country: US (occurrence: US)
  Receive Date: 20250919
  Receipt Date: 20250919
  Transmission Date: 20251020
  Serious: Yes (Other)
  Sender: Truegenics
  Company Number: US-Truegenics Pte Ltd-2184835

PATIENT
  Age: 67 Year
  Sex: Male

DRUGS (1)
  1. ARCTIC BLAST PAIN RELEIVING [Suspect]
     Active Substance: CAMPHOR (SYNTHETIC)\MENTHOL
     Indication: Pain
     Dates: start: 20250623, end: 20250623

REACTIONS (2)
  - Skin swelling [Recovering/Resolving]
  - Application site pruritus [Recovering/Resolving]

NARRATIVE: CASE EVENT DATE: 20250623
